FAERS Safety Report 6986165-6 (Version None)
Quarter: 2010Q3

REPORT INFORMATION
  Report Type: 
  Country: None (occurrence: None)
  Receive Date: 20100915
  Receipt Date: 20090806
  Transmission Date: 20110219
  Serious: No
  Sender: FDA-Public Use
  Company Number: US-WYE-H09577609

PATIENT
  Age: 54 Year
  Sex: Female
  Weight: 76.27 kg

DRUGS (6)
  1. PRISTIQ [Suspect]
     Indication: DEPRESSION
     Route: 048
     Dates: start: 20090430
  2. BENICAR [Concomitant]
  3. ESOMEPRAZOLE MAGNESIUM [Concomitant]
  4. ATOMOXETINE HCL [Concomitant]
  5. EZETIMIBE/SIMVASTATIN [Concomitant]
  6. BYETTA [Concomitant]

REACTIONS (8)
  - BLOOD PRESSURE INCREASED [None]
  - CONDITION AGGRAVATED [None]
  - CONSTIPATION [None]
  - FOOD CRAVING [None]
  - HEADACHE [None]
  - HUNGER [None]
  - INTENTIONAL DRUG MISUSE [None]
  - WEIGHT INCREASED [None]
